FAERS Safety Report 9502710 (Version 1)
Quarter: 2013Q3

REPORT INFORMATION
  Report Type: Spontaneous
  Country: US (occurrence: US)
  Receive Date: 20130906
  Receipt Date: 20130906
  Transmission Date: 20140515
  Serious: No
  Sender: FDA-Public Use
  Company Number: US-BAYER-2013-107744

PATIENT
  Sex: 0

DRUGS (6)
  1. ALEVE CAPLET [Suspect]
  2. EXCEDRIN MIGRAINE [Suspect]
  3. TYLENOL SINUS [Suspect]
  4. IBUPROFEN [Suspect]
  5. DAYQUIL [DEXTROMET HBR,GUAIF,PARACET,PSEUDOEPH HCL] [Suspect]
  6. CAFFEINE [Concomitant]

REACTIONS (1)
  - Drug ineffective [None]
